FAERS Safety Report 7414709-9 (Version None)
Quarter: 2011Q2

REPORT INFORMATION
  Report Type: 
  Country: None (occurrence: None)
  Receive Date: 20110406
  Receipt Date: 20110329
  Transmission Date: 20111010
  Serious: Yes (Other)
  Sender: FDA-Public Use
  Company Number: A0882621A

PATIENT
  Age: 32 Year
  Sex: Female

DRUGS (2)
  1. ANTIBIOTICS  (FORMULATION UNKNOWN) (ANTIBIOTICS) [Suspect]
  2. UREA PEROXIDE [Suspect]

REACTIONS (21)
  - HYPOACUSIS [None]
  - DIZZINESS [None]
  - PYREXIA [None]
  - FATIGUE [None]
  - PARAESTHESIA [None]
  - MALAISE [None]
  - SINUSITIS [None]
  - NAUSEA [None]
  - EAR DISCOMFORT [None]
  - OROPHARYNGEAL PAIN [None]
  - EAR PRURITUS [None]
  - SINUS HEADACHE [None]
  - INFLUENZA LIKE ILLNESS [None]
  - INSOMNIA [None]
  - EAR PAIN [None]
  - PRODUCT QUALITY ISSUE [None]
  - ANXIETY [None]
  - OTORRHOEA [None]
  - TINNITUS [None]
  - HEADACHE [None]
  - DYSPHONIA [None]
